FAERS Safety Report 23539301 (Version 2)
Quarter: 2024Q2

REPORT INFORMATION
  Report Type: Report from Study
  Country: US (occurrence: US)
  Receive Date: 20240219
  Receipt Date: 20240405
  Transmission Date: 20240716
  Serious: Yes (Hospitalization, Other)
  Sender: FDA-Public Use
  Company Number: US-UCBSA-2024007500

PATIENT
  Sex: Male

DRUGS (2)
  1. ROZANOLIXIZUMAB [Interacting]
     Active Substance: ROZANOLIXIZUMAB
     Indication: Myasthenia gravis
     Dosage: 840MG (6ML) ONCE WEEKLY 6 WEEKS
     Route: 058
  2. CELLCEPT [Interacting]
     Active Substance: MYCOPHENOLATE MOFETIL
     Indication: Product used for unknown indication
     Dosage: UNK

REACTIONS (2)
  - Thrombosis [Unknown]
  - Drug interaction [Unknown]
